FAERS Safety Report 7430336-1 (Version None)
Quarter: 2011Q2

REPORT INFORMATION
  Report Type: 
  Country: None (occurrence: None)
  Receive Date: 20110421
  Receipt Date: 20100923
  Transmission Date: 20111010
  Serious: No
  Sender: FDA-Public Use
  Company Number: US-ASTRAZENECA-2010SE44817

PATIENT
  Age: 74 Year
  Sex: Female
  Weight: 77.1 kg

DRUGS (4)
  1. TOPROL-XL [Interacting]
     Route: 048
  2. CYTOMEL [Interacting]
     Indication: THYROID DISORDER
     Dosage: 25 MCG
  3. TOPROL-XL [Suspect]
     Route: 048
     Dates: start: 20080101, end: 20080101
  4. LIPITOR [Concomitant]
     Indication: BLOOD CHOLESTEROL

REACTIONS (7)
  - HYPERHIDROSIS [None]
  - OEDEMA PERIPHERAL [None]
  - DRUG INTERACTION [None]
  - TACHYCARDIA [None]
  - CHILLS [None]
  - FLUSHING [None]
  - FEELING COLD [None]
